FAERS Safety Report 4870475-2 (Version None)
Quarter: 2005Q4

REPORT INFORMATION
  Report Type: 
  Country: None (occurrence: None)
  Receive Date: 20051228
  Receipt Date: 20051220
  Transmission Date: 20060501
  Serious: Yes (Death, Hospitalization, Other)
  Sender: FDA-Public Use
  Company Number: 2005-US-00101

PATIENT
  Age: 52 Year
  Sex: Male

DRUGS (6)
  1. CLOZAPINE [Suspect]
     Indication: SCHIZOAFFECTIVE DISORDER
     Dosage: 800 MG, QD, ORAL
     Route: 048
     Dates: start: 19990101, end: 20050801
  2. BUPROPION [Concomitant]
  3. CLONAZEPAM [Concomitant]
  4. HALOPERIDOL [Concomitant]
  5. ARIPIPRAZOLE [Concomitant]
  6. ESCITALOPRAM OXALATE [Concomitant]

REACTIONS (1)
  - LYMPHOMA [None]
